FAERS Safety Report 9278591 (Version 1)
Quarter: 2013Q2

REPORT INFORMATION
  Report Type: Spontaneous
  Country: US (occurrence: US)
  Receive Date: 20130508
  Receipt Date: 20130508
  Transmission Date: 20140414
  Serious: Yes (Other)
  Sender: FDA-Public Use
  Company Number: PHEH2013US010104

PATIENT
  Sex: Male

DRUGS (1)
  1. FANAPT [Suspect]
     Dosage: 9 MG, DAILY
     Dates: start: 20130417

REACTIONS (9)
  - Convulsion [Unknown]
  - Musculoskeletal stiffness [Unknown]
  - Movement disorder [Unknown]
  - Arrhythmia [Unknown]
  - Syncope [Unknown]
  - Eye disorder [Unknown]
  - Malaise [Unknown]
  - Tachycardia [Unknown]
  - Hypotension [Unknown]
